FAERS Safety Report 8116315-X (Version None)
Quarter: 2012Q1

REPORT INFORMATION
  Report Type: 
  Country: None (occurrence: None)
  Receive Date: 20120206
  Receipt Date: 20101123
  Transmission Date: 20120608
  Serious: Yes (Hospitalization)
  Sender: FDA-Public Use
  Company Number: US-GLAXOSMITHKLINE-A0896856A

PATIENT
  Age: 63 Year
  Sex: Male
  Weight: 101.7 kg

DRUGS (7)
  1. DOXYCYCLINE [Concomitant]
     Dosage: 100MG TWICE PER DAY
     Route: 048
     Dates: start: 20101109
  2. LEXAPRO [Concomitant]
     Dosage: 10MG PER DAY
     Route: 048
     Dates: start: 20100827
  3. VOTRIENT [Suspect]
     Indication: NON-SMALL CELL LUNG CANCER
     Route: 048
     Dates: start: 20101103
  4. VICODIN [Concomitant]
     Dates: start: 20101109
  5. LIDEX [Concomitant]
     Indication: RASH
     Route: 061
     Dates: start: 20101109
  6. ZYRTEC [Concomitant]
     Dosage: 10MG AS REQUIRED
     Route: 048
     Dates: start: 20100701
  7. ERLOTINIB HYDROCHLORIDE [Suspect]
     Indication: NON-SMALL CELL LUNG CANCER
     Dosage: 150MG PER DAY
     Route: 048
     Dates: start: 20101103

REACTIONS (2)
  - MENTAL STATUS CHANGES [None]
  - PYREXIA [None]
